FAERS Safety Report 24248790 (Version 1)
Quarter: 2024Q3

REPORT INFORMATION
  Report Type: Spontaneous
  Country: US (occurrence: None)
  Receive Date: 20240823
  Receipt Date: 20240823
  Transmission Date: 20241017
  Serious: Yes (Hospitalization)
  Sender: Public
  Company Number: None

PATIENT
  Age: 65 Year
  Sex: Male

DRUGS (1)
  1. EVEROLIMUS [Suspect]
     Active Substance: EVEROLIMUS
     Indication: Thyroid cancer
     Dosage: FREQUENCY : DAILY;?

REACTIONS (3)
  - Weight decreased [None]
  - Oral mucosal blistering [None]
  - Dysphagia [None]
